FAERS Safety Report 17034912 (Version 1)
Quarter: 2019Q4

REPORT INFORMATION
  Report Type: Spontaneous
  Country: US (occurrence: US)
  Receive Date: 20191015
  Receipt Date: 20191015
  Transmission Date: 20200122
  Serious: No
  Sender: FDA-Public Use
  Company Number: None

PATIENT
  Sex: Female

DRUGS (2)
  1. HUMIRA [Suspect]
     Active Substance: ADALIMUMAB
     Indication: PSORIATIC ARTHROPATHY
  2. HUMIRA [Suspect]
     Active Substance: ADALIMUMAB
     Indication: SPONDYLOARTHROPATHY
     Route: 058
     Dates: start: 20190808

REACTIONS (7)
  - Alopecia [None]
  - Rash pruritic [None]
  - Mobility decreased [None]
  - Loss of personal independence in daily activities [None]
  - Back disorder [None]
  - Arthralgia [None]
  - Pain in extremity [None]
